FAERS Safety Report 5278781-7 (Version None)
Quarter: 2007Q1

REPORT INFORMATION
  Report Type: 
  Country: None (occurrence: None)
  Receive Date: 20070328
  Receipt Date: 20070321
  Transmission Date: 20070707
  Serious: Yes (Hospitalization)
  Sender: FDA-Public Use
  Company Number: DE-BRISTOL-MYERS SQUIBB COMPANY-13728316

PATIENT
  Sex: Male

DRUGS (4)
  1. ERBITUX [Suspect]
     Indication: COLORECTAL CANCER METASTATIC
  2. IRINOTECAN [Suspect]
     Indication: COLORECTAL CANCER METASTATIC
  3. LEUCOVORIN CALCIUM [Suspect]
     Indication: COLORECTAL CANCER METASTATIC
  4. FLUOROURACIL [Suspect]
     Indication: COLORECTAL CANCER METASTATIC

REACTIONS (6)
  - ASTHENIA [None]
  - DIARRHOEA [None]
  - FATIGUE [None]
  - HYPOCALCAEMIA [None]
  - HYPOMAGNESAEMIA [None]
  - PARAESTHESIA [None]
